FAERS Safety Report 26064709 (Version 1)
Quarter: 2025Q4

REPORT INFORMATION
  Report Type: Spontaneous
  Country: JP (occurrence: JP)
  Receive Date: 20251119
  Receipt Date: 20251119
  Transmission Date: 20260117
  Serious: Yes (Death, Other)
  Sender: AMGEN
  Company Number: JP-AMGEN-JPNSP2025225214

PATIENT

DRUGS (2)
  1. BEVACIZUMAB [Suspect]
     Active Substance: BEVACIZUMAB
     Indication: Hepatocellular carcinoma
     Dosage: 15 MILLIGRAM/KILOGRAM, Q3WK
     Route: 065
  2. ATEZOLIZUMAB [Concomitant]
     Active Substance: ATEZOLIZUMAB
     Indication: Hepatocellular carcinoma
     Dosage: 1200 MILLIGRAM

REACTIONS (15)
  - Death [Fatal]
  - Hypertension [Unknown]
  - Proteinuria [Unknown]
  - Malaise [Unknown]
  - Decreased appetite [Unknown]
  - Sepsis [Unknown]
  - Blood creatine phosphokinase increased [Unknown]
  - Diarrhoea [Unknown]
  - Adrenal insufficiency [Unknown]
  - Hepatocellular carcinoma [Unknown]
  - Pneumonitis [Unknown]
  - Pruritus [Unknown]
  - Stomatitis [Unknown]
  - Oedema [Unknown]
  - Therapy partial responder [Unknown]
